FAERS Safety Report 6187555-4 (Version None)
Quarter: 2009Q2

REPORT INFORMATION
  Report Type: 
  Country: None (occurrence: None)
  Receive Date: 20090508
  Receipt Date: 20090428
  Transmission Date: 20091009
  Serious: Yes (Hospitalization)
  Sender: FDA-Public Use
  Company Number: GXKR2009ES05149

PATIENT
  Age: 50 Year
  Sex: Female

DRUGS (6)
  1. DIPYRONE INJ [Suspect]
     Indication: SINUSITIS
     Dosage: INTRAMUSCULAR
     Route: 030
  2. AMOXICILLIN AND CLAVULANATE POTASSIUM [Suspect]
     Indication: SINUSITIS
  3. IBUPROFEN [Suspect]
     Indication: SINUSITIS
  4. EPINEPHRINE [Suspect]
     Indication: ANAPHYLACTIC REACTION
     Dosage: 1 MG, SUBCUTANEOUS
     Route: 058
  5. SALMETEROL (SALMETEROL) [Concomitant]
  6. FLUTICASONE PROPIONATE [Concomitant]

REACTIONS (7)
  - ACUTE CORONARY SYNDROME [None]
  - ANAPHYLACTIC SHOCK [None]
  - DRUG INTOLERANCE [None]
  - KOUNIS SYNDROME [None]
  - MYOCARDIAL INFARCTION [None]
  - SINUS BRADYCARDIA [None]
  - VENTRICULAR TACHYCARDIA [None]
